FAERS Safety Report 4745193-1 (Version None)
Quarter: 2005Q3

REPORT INFORMATION
  Report Type: 
  Country: None (occurrence: None)
  Receive Date: 20050815
  Receipt Date: 20050804
  Transmission Date: 20060218
  Serious: Yes (Other)
  Sender: FDA-Public Use
  Company Number: US-JNJFOC-20050304248

PATIENT
  Sex: Female

DRUGS (4)
  1. DURAGESIC-100 [Suspect]
     Route: 062
  2. DURAGESIC-100 [Suspect]
     Route: 062
  3. DURAGESIC-100 [Suspect]
     Route: 062
  4. DURAGESIC-100 [Suspect]
     Route: 062

REACTIONS (15)
  - ABDOMINAL PAIN [None]
  - ANXIETY [None]
  - DIARRHOEA [None]
  - DRUG INEFFECTIVE [None]
  - EMOTIONAL DISTRESS [None]
  - HYPOAESTHESIA [None]
  - INJURY [None]
  - NAUSEA [None]
  - OVERDOSE [None]
  - PAIN [None]
  - PARAESTHESIA [None]
  - RADIAL NERVE PALSY [None]
  - RHINORRHOEA [None]
  - VAGINAL HAEMORRHAGE [None]
  - VOMITING [None]
